FAERS Safety Report 9251956 (Version 1)
Quarter: 2013Q1

REPORT INFORMATION
  Report Type: Spontaneous
  Country: US (occurrence: None)
  Receive Date: 20130305
  Receipt Date: 20130305
  Transmission Date: 20140127
  Serious: Yes (Other)
  Sender: FDA-Public Use
  Company Number: 163-21880-12092611

PATIENT
  Age: 79 Year
  Sex: Male

DRUGS (11)
  1. REVLIMID [Suspect]
     Indication: PLASMA CELL MYELOMA
     Dosage: 21 IN 21 D
     Route: 048
     Dates: start: 20120907, end: 20120913
  2. ALBUTEROL (SALBUTAMOL) [Concomitant]
  3. POTASSIUM (POTASSIUM) [Concomitant]
  4. FUROSEMIDE (FUROSEMIDE) [Concomitant]
  5. CARVEDILOL (CARVEDILOL) [Concomitant]
  6. DEXAMETHASONE (DEXAMETHASONE) [Concomitant]
  7. LISINOPRIL (LISINOPRIL) [Concomitant]
  8. PRADAXA (DABIGATRAN ETEXILATE MESILATE) [Concomitant]
  9. ATORVASTATIN (ATORVASTATIN) [Concomitant]
  10. PROAIR (FLUTICASONE PROPIONATE) [Concomitant]
  11. BABY ASPIRIN (ACETYLSALICYLIC ACID) [Concomitant]

REACTIONS (4)
  - Fatigue [None]
  - Dyspnoea [None]
  - Asthenia [None]
  - Constipation [None]
